FAERS Safety Report 20775944 (Version 1)
Quarter: 2022Q2

REPORT INFORMATION
  Report Type: Spontaneous
  Country: US (occurrence: US)
  Receive Date: 20220502
  Receipt Date: 20220502
  Transmission Date: 20220720
  Serious: No
  Sender: FDA-Public Use
  Company Number: US-Accord-259003

PATIENT
  Sex: Male

DRUGS (1)
  1. FLUOROURACIL [Suspect]
     Active Substance: FLUOROURACIL
     Indication: Prophylaxis
     Dosage: 2 TIMES A DAY, MORNING AND EVENING
     Route: 061

REACTIONS (1)
  - Vision blurred [Not Recovered/Not Resolved]
